FAERS Safety Report 8811281 (Version 1)
Quarter: 2012Q4

REPORT INFORMATION
  Report Type: Spontaneous
  Country: US (occurrence: None)
  Receive Date: 20120924
  Receipt Date: 20120924
  Transmission Date: 20130627
  Serious: Yes (Hospitalization)
  Sender: FDA-Public Use
  Company Number: 2012SUN00039

PATIENT
  Sex: Male

DRUGS (3)
  1. ALPRAZOLAM [Suspect]
     Indication: DRUG USE FOR UNKNOWN INDICATION
  2. OXYCODON [Suspect]
     Indication: DRUG USE FOR UNKNOWN INDICATION
  3. COCAINE [Concomitant]

REACTIONS (9)
  - Leukoencephalopathy [None]
  - Overdose [None]
  - Respiratory arrest [None]
  - Pneumonia aspiration [None]
  - Acidosis [None]
  - Disorientation [None]
  - Depression [None]
  - Agitation [None]
  - General physical health deterioration [None]
